FAERS Safety Report 12861311 (Version 1)
Quarter: 2016Q4

REPORT INFORMATION
  Report Type: Spontaneous
  Country: CA (occurrence: CA)
  Receive Date: 20161019
  Receipt Date: 20161019
  Transmission Date: 20170207
  Serious: Yes (Other)
  Sender: FDA-Public Use
  Company Number: CA-PAR PHARMACEUTICAL COMPANIES-2016SCPR015997

PATIENT
  Age: 51 Year
  Sex: Male

DRUGS (12)
  1. ACTIVATED CHARCOAL [Suspect]
     Active Substance: ACTIVATED CHARCOAL
     Indication: OVERDOSE
     Dosage: UNK UNK, UNKNOWN
     Route: 065
  2. GLUCOSE [Suspect]
     Active Substance: DEXTROSE
     Indication: OVERDOSE
     Dosage: UNK UNK, UNKNOWN
     Route: 065
  3. OLIMEL [Suspect]
     Active Substance: AMINO ACIDS\DEXTROSE\SOYBEAN OIL
     Indication: OVERDOSE
     Dosage: 960 ML, UNKNOWN
     Route: 042
  4. OLIMEL [Suspect]
     Active Substance: AMINO ACIDS\DEXTROSE\SOYBEAN OIL
     Indication: OFF LABEL USE
  5. VASOPRESSIN. [Suspect]
     Active Substance: VASOPRESSIN
     Indication: OVERDOSE
     Dosage: UNK UNK, UNKNOWN
     Route: 065
  6. CALCIUM [Suspect]
     Active Substance: CALCIUM
     Indication: OVERDOSE
     Dosage: UNK UNK, UNKNOWN
     Route: 065
  7. METHYLENE BLUE. [Suspect]
     Active Substance: METHYLENE BLUE
     Indication: OVERDOSE
     Dosage: 80 MG, UNKNOWN
     Route: 065
  8. ATROPINE. [Suspect]
     Active Substance: ATROPINE
     Indication: OVERDOSE
     Dosage: UNK UNK, UNKNOWN
     Route: 065
  9. GLUCAGON. [Suspect]
     Active Substance: GLUCAGON
     Indication: OVERDOSE
     Dosage: 5 MG, UNKNOWN
     Route: 065
  10. INSULIN [Suspect]
     Active Substance: INSULIN NOS
     Indication: OVERDOSE
     Dosage: 60 I.U., 1 EVERY 1 HOUR
     Route: 065
  11. NOREPINEPHRINE [Suspect]
     Active Substance: NOREPINEPHRINE\NOREPINEPHRINE BITARTRATE
     Indication: OVERDOSE
     Dosage: UNK UNK, UNKNOWN
     Route: 065
  12. ADRENALIN [Suspect]
     Active Substance: EPINEPHRINE
     Indication: OVERDOSE
     Dosage: UNK UNK, UNKNOWN
     Route: 065

REACTIONS (4)
  - Hypotension [Recovered/Resolved]
  - Condition aggravated [Recovered/Resolved]
  - Lactic acidosis [Recovered/Resolved]
  - Off label use [Unknown]
